FAERS Safety Report 13333375 (Version 9)
Quarter: 2017Q3

REPORT INFORMATION
  Report Type: Report from Study
  Country: IL (occurrence: IL)
  Receive Date: 20170313
  Receipt Date: 20170821
  Transmission Date: 20171127
  Serious: Yes (Other)
  Sender: FDA-Public Use
  Company Number: IL-JNJFOC-20170309424

PATIENT
  Age: 67 Year
  Sex: Female

DRUGS (3)
  1. SILVEROL [Concomitant]
     Route: 065
  2. OPTALGIN [Concomitant]
     Active Substance: METAMIZOLE
     Route: 065
  3. SIMPONI [Suspect]
     Active Substance: GOLIMUMAB
     Indication: RHEUMATOID ARTHRITIS
     Route: 058

REACTIONS (8)
  - Pulmonary function test decreased [Recovering/Resolving]
  - Dyspnoea [Not Recovered/Not Resolved]
  - Malaise [Unknown]
  - Arthralgia [Not Recovered/Not Resolved]
  - Burns second degree [Recovering/Resolving]
  - Cough [Not Recovered/Not Resolved]
  - Pelvic pain [Recovered/Resolved]
  - Asthenia [Not Recovered/Not Resolved]

NARRATIVE: CASE EVENT DATE: 20170304
